FAERS Safety Report 21298799 (Version 1)
Quarter: 2022Q3

REPORT INFORMATION
  Report Type: Spontaneous
  Country: US (occurrence: US)
  Receive Date: 20220906
  Receipt Date: 20220906
  Transmission Date: 20221026
  Serious: Yes (Hospitalization, Other)
  Sender: FDA-Public Use
  Company Number: US-Accord-275575

PATIENT
  Age: 69 Year
  Weight: 92.80 kg

DRUGS (23)
  1. GLIMEPIRIDE [Suspect]
     Active Substance: GLIMEPIRIDE
     Indication: Diabetes mellitus
     Route: 065
  2. INOTUZUMAB OZOGAMICIN [Suspect]
     Active Substance: INOTUZUMAB OZOGAMICIN
     Indication: Acute lymphocytic leukaemia
     Dosage: DAYS 1 AND 8 OF CYCLES 1-2
     Route: 042
     Dates: start: 20210925, end: 20211029
  3. RITUXIMAB [Suspect]
     Active Substance: RITUXIMAB
     Indication: Acute lymphocytic leukaemia
     Dosage: DAY 1 AND 8 OF CYCLES 1-2
     Route: 042
     Dates: start: 20210925, end: 20211029
  4. BLINATUMOMAB [Suspect]
     Active Substance: BLINATUMOMAB
     Indication: Acute lymphocytic leukaemia
     Dosage: CONTINUOUS DAYS 1-28 OF SPECIFIED CYCLES
     Route: 042
     Dates: start: 20211130, end: 20220507
  5. ABILIFY [Concomitant]
     Active Substance: ARIPIPRAZOLE
  6. DULAGLUTIDE [Concomitant]
     Active Substance: DULAGLUTIDE
  7. LEXAPRO [Concomitant]
     Active Substance: ESCITALOPRAM OXALATE
  8. LASIX [Concomitant]
     Active Substance: FUROSEMIDE
  9. NEURONTIN [Concomitant]
     Active Substance: GABAPENTIN
  10. NORCO [Concomitant]
     Active Substance: ACETAMINOPHEN\HYDROCODONE BITARTRATE
  11. ATARAX [Concomitant]
     Active Substance: HYDROXYZINE HYDROCHLORIDE
  12. LEVAQUIN [Concomitant]
     Active Substance: LEVOFLOXACIN
  13. ATIVAN [Concomitant]
     Active Substance: LORAZEPAM
  14. GLUCOPHAGE [Concomitant]
     Active Substance: METFORMIN HYDROCHLORIDE
  15. LOPRESSOR [Concomitant]
     Active Substance: METOPROLOL TARTRATE
  16. PRILOSEC [Concomitant]
     Active Substance: OMEPRAZOLE MAGNESIUM
  17. DITROPAN [Concomitant]
     Active Substance: OXYBUTYNIN CHLORIDE
  18. NOXAFIL [Concomitant]
     Active Substance: POSACONAZOLE
  19. SENOKOT-S [Concomitant]
     Active Substance: DOCUSATE SODIUM\SENNOSIDES
  20. ZOCOR [Concomitant]
     Active Substance: SIMVASTATIN
  21. VALTREX [Concomitant]
     Active Substance: VALACYCLOVIR HYDROCHLORIDE
  22. DIOVAN [Concomitant]
     Active Substance: VALSARTAN
  23. AMBIEN [Concomitant]
     Active Substance: ZOLPIDEM TARTRATE

REACTIONS (1)
  - Colitis [Recovered/Resolved]

NARRATIVE: CASE EVENT DATE: 20220813
